FAERS Safety Report 13429525 (Version 13)
Quarter: 2021Q1

REPORT INFORMATION
  Report Type: Spontaneous
  Country: GB (occurrence: GB)
  Receive Date: 20170411
  Receipt Date: 20210226
  Transmission Date: 20210419
  Serious: Yes (Hospitalization, Other)
  Sender: FDA-Public Use
  Company Number: GB-MYLANLABS-2017M1021708

PATIENT
  Age: 63 Year
  Sex: Male

DRUGS (6)
  1. CLOZARIL [Suspect]
     Active Substance: CLOZAPINE
     Dosage: UNK
     Route: 048
     Dates: start: 20201012, end: 20201028
  2. CLOZARIL [Suspect]
     Active Substance: CLOZAPINE
     Indication: SCHIZOPHRENIA
     Dosage: UNK
     Route: 048
     Dates: start: 20161110
  3. CLOZARIL [Suspect]
     Active Substance: CLOZAPINE
     Dosage: 400 MILLIGRAM, QD (200 MG, BID)
     Route: 048
     Dates: start: 2017, end: 20191230
  4. ARIPIPRAZOLE. [Suspect]
     Active Substance: ARIPIPRAZOLE
     Indication: PRODUCT USED FOR UNKNOWN INDICATION
     Dosage: 400 MILLIGRAM, MONTHLY, DEPOTE
     Route: 065
  5. CLOZARIL [Suspect]
     Active Substance: CLOZAPINE
     Dosage: UNK
     Route: 048
  6. AMISULPRIDE [Suspect]
     Active Substance: AMISULPRIDE
     Indication: PRODUCT USED FOR UNKNOWN INDICATION
     Dosage: UNK, TOP DOSE
     Route: 065

REACTIONS (11)
  - Schizophrenia [Unknown]
  - Neutropenia [Recovered/Resolved]
  - Seizure [Unknown]
  - Sedation [Unknown]
  - Salivary hypersecretion [Unknown]
  - Haemoglobin decreased [Recovered/Resolved]
  - Agitation [Unknown]
  - Neutrophil count decreased [Recovering/Resolving]
  - Antipsychotic drug level increased [Unknown]
  - White blood cell count decreased [Recovered/Resolved]
  - Delusion [Unknown]

NARRATIVE: CASE EVENT DATE: 20170206
